FAERS Safety Report 20460081 (Version 1)
Quarter: 2022Q1

REPORT INFORMATION
  Report Type: Report from Study
  Country: US (occurrence: US)
  Receive Date: 20220211
  Receipt Date: 20220211
  Transmission Date: 20220423
  Serious: Yes (Hospitalization)
  Sender: FDA-Public Use
  Company Number: US-JAZZ-2021-US-005543

PATIENT
  Age: 7 Year
  Sex: Male
  Weight: 18.7 kg

DRUGS (11)
  1. ASPARAGINASE ERWINIA CHRYSANTHEMI [Suspect]
     Active Substance: ASPARAGINASE ERWINIA CHRYSANTHEMI
     Dosage: 37.5 MILLIGRAM/SQ. METER, 3XWEEKLY PER 2W COURSE
     Route: 030
     Dates: start: 20200904, end: 20200916
  2. ASPARAGINASE ERWINIA CHRYSANTHEMI [Suspect]
     Active Substance: ASPARAGINASE ERWINIA CHRYSANTHEMI
     Dosage: 37.5 MILLIGRAM/SQ. METER, 3XWEEKLY PER 2W COURSE
     Route: 030
     Dates: start: 20210115, end: 20210127
  3. ASPARAGINASE ERWINIA CHRYSANTHEMI [Suspect]
     Active Substance: ASPARAGINASE ERWINIA CHRYSANTHEMI
     Dosage: 37.5 MILLIGRAM/SQ. METER, 3XWEEKLY PER 2W COURSE
     Route: 030
     Dates: start: 20210312, end: 20210322
  4. BACTRIM [Concomitant]
     Active Substance: SULFAMETHOXAZOLE\TRIMETHOPRIM
     Dosage: 0.5-1 TAB, BID SAT-SUN
     Route: 048
     Dates: start: 20200620
  5. SODIUM FLUORIDE\SODIUM MONOFLUOROPHOSPHATE [Concomitant]
     Active Substance: SODIUM FLUORIDE\SODIUM MONOFLUOROPHOSPHATE
     Dosage: 10 MILLILITER, TID
     Route: 048
     Dates: start: 20200611
  6. BENADRYL [Concomitant]
     Active Substance: DIPHENHYDRAMINE HYDROCHLORIDE
     Dosage: 7-8 MILLILITER, PRN
     Route: 048
     Dates: start: 20200901, end: 20210317
  7. EMLA [Concomitant]
     Active Substance: LIDOCAINE\PRILOCAINE
     Dosage: 2.5-2.5 PERCENT, PRN
     Route: 061
     Dates: start: 20200617
  8. ZOFRAN [Concomitant]
     Active Substance: ONDANSETRON HYDROCHLORIDE
     Dosage: 2 MILLIGRAM, Q6H PRN
     Route: 048
     Dates: start: 20200617
  9. SENNOSIDES [Concomitant]
     Active Substance: SENNOSIDES
     Dosage: 8.6 MILLIGRAM, QD PRN
     Route: 048
     Dates: start: 20200617
  10. VINCRISTINE [Concomitant]
     Active Substance: VINCRISTINE
     Dosage: 1.5 MILLIGRAM/SQ. METER, PRN
     Route: 042
     Dates: start: 20200901
  11. VITAMIN D3 [Concomitant]
     Active Substance: CHOLECALCIFEROL
     Dosage: 2000 UNITS, QD
     Route: 048
     Dates: start: 20200810

REACTIONS (1)
  - Febrile neutropenia [Recovered/Resolved]

NARRATIVE: CASE EVENT DATE: 20210323
